FAERS Safety Report 23103833 (Version 1)
Quarter: 2023Q4

REPORT INFORMATION
  Report Type: Spontaneous
  Country: US (occurrence: None)
  Receive Date: 20231022
  Receipt Date: 20231022
  Transmission Date: 20240109
  Serious: Yes (Hospitalization)
  Sender: FDA-Public Use
  Company Number: None

PATIENT
  Age: 73 Year
  Sex: Male
  Weight: 107 kg

DRUGS (2)
  1. NIRMATRELVIR\RITONAVIR [Suspect]
     Active Substance: NIRMATRELVIR\RITONAVIR
     Dates: start: 20230405, end: 20230410
  2. RITONAVIR [Concomitant]
     Active Substance: RITONAVIR

REACTIONS (2)
  - Dermatitis contact [None]
  - Dermatitis contact [None]

NARRATIVE: CASE EVENT DATE: 20230418
